FAERS Safety Report 24628744 (Version 2)
Quarter: 2024Q4

REPORT INFORMATION
  Report Type: Spontaneous
  Country: US (occurrence: US)
  Receive Date: 20241117
  Receipt Date: 20241127
  Transmission Date: 20250114
  Serious: Yes (Other)
  Sender: ABBVIE
  Company Number: US-ABBVIE-6004811

PATIENT
  Age: 64 Year
  Sex: Female
  Weight: 48.987 kg

DRUGS (6)
  1. RINVOQ [Suspect]
     Active Substance: UPADACITINIB
     Indication: Rheumatoid arthritis
     Route: 048
     Dates: start: 202407, end: 20240824
  2. RINVOQ [Suspect]
     Active Substance: UPADACITINIB
     Indication: Rheumatoid arthritis
     Route: 048
     Dates: start: 20240919
  3. RINVOQ [Suspect]
     Active Substance: UPADACITINIB
     Indication: Rheumatoid arthritis
     Route: 048
     Dates: start: 2021, end: 202305
  4. ARMOUR THYROID [Concomitant]
     Active Substance: THYROID, PORCINE
     Indication: Hypothyroidism
     Dosage: 3 DAYS A WEEK
  5. LEVOTHYROXINE [Concomitant]
     Active Substance: LEVOTHYROXINE
     Indication: Product used for unknown indication
     Dosage: 5 DAYS A WEEK AND HALF A TABLET ON SATURDAY
  6. CORTISONE [Concomitant]
     Active Substance: CORTISONE
     Indication: Product used for unknown indication

REACTIONS (10)
  - Joint injury [Recovering/Resolving]
  - Arthralgia [Recovering/Resolving]
  - Bone cyst [Unknown]
  - Cartilage atrophy [Recovering/Resolving]
  - Cartilage atrophy [Recovered/Resolved]
  - Herpes zoster [Recovered/Resolved]
  - Pain in extremity [Recovered/Resolved]
  - Musculoskeletal disorder [Recovered/Resolved]
  - Mobility decreased [Recovering/Resolving]
  - Cartilage atrophy [Recovered/Resolved]

NARRATIVE: CASE EVENT DATE: 20230101
